FAERS Safety Report 16586058 (Version 1)
Quarter: 2019Q3

REPORT INFORMATION
  Report Type: Report from Study
  Country: US (occurrence: US)
  Receive Date: 20190717
  Receipt Date: 20190717
  Transmission Date: 20191004
  Serious: Yes (Other)
  Sender: FDA-Public Use
  Company Number: US-ASTELLAS-2019US027864

PATIENT
  Sex: Male

DRUGS (2)
  1. ASP2215 [Suspect]
     Active Substance: GILTERITINIB
     Indication: ACUTE MYELOID LEUKAEMIA
     Route: 048
     Dates: start: 20190620
  2. ASP2215 [Suspect]
     Active Substance: GILTERITINIB
     Route: 048

REACTIONS (2)
  - Neuropathy peripheral [Unknown]
  - Constipation [Unknown]
